FAERS Safety Report 10271409 (Version 1)
Quarter: 2014Q3

REPORT INFORMATION
  Report Type: Spontaneous
  Country: US (occurrence: US)
  Receive Date: 20140701
  Receipt Date: 20140701
  Transmission Date: 20150326
  Serious: No
  Sender: FDA-Public Use
  Company Number: US-GILEAD-2014-0107055

PATIENT
  Sex: Female

DRUGS (2)
  1. WARFARIN [Concomitant]
     Active Substance: WARFARIN
  2. LETAIRIS [Suspect]
     Active Substance: AMBRISENTAN
     Indication: PRODUCT USED FOR UNKNOWN INDICATION
     Dosage: 5 MG, QD
     Route: 065
     Dates: start: 20140107

REACTIONS (7)
  - Visual impairment [Unknown]
  - Oedema peripheral [Unknown]
  - Dizziness [Unknown]
  - Dyspnoea exertional [Unknown]
  - Somnolence [Unknown]
  - Dyspepsia [Unknown]
  - Asthenia [Unknown]
